FAERS Safety Report 20034038 (Version 1)
Quarter: 2021Q4

REPORT INFORMATION
  Report Type: Report from Study
  Country: US (occurrence: US)
  Receive Date: 20211104
  Receipt Date: 20211104
  Transmission Date: 20220303
  Serious: Yes (Other)
  Sender: FDA-Public Use
  Company Number: US-MYLANLABS-2021M1080951

PATIENT

DRUGS (11)
  1. METHOTREXATE [Suspect]
     Active Substance: METHOTREXATE
     Indication: Anaplastic large-cell lymphoma
     Dosage: DAY 1
     Route: 037
  2. DEXAMETHASONE [Suspect]
     Active Substance: DEXAMETHASONE
     Indication: Anaplastic large-cell lymphoma
     Dosage: 40 MILLIGRAM/SQ. METER, QD,DIVIDED INTO THREE DOSES AND GIVEN EVERY 8 H FOR 12 DOSES, STARTING ON DA
     Route: 042
  3. ETOPOSIDE [Suspect]
     Active Substance: ETOPOSIDE
     Indication: Anaplastic large-cell lymphoma
     Dosage: 200 MILLIGRAM/SQ. METER, QD,DAY 2-4, OVER 2H
     Route: 042
  4. IFOSFAMIDE [Suspect]
     Active Substance: IFOSFAMIDE
     Indication: Anaplastic large-cell lymphoma
     Dosage: 2000 MILLIGRAM/SQ. METER, QD, DAY 2-4; OVER 2H
     Route: 042
  5. POTASSIUM CHLORIDE [Concomitant]
     Active Substance: POTASSIUM CHLORIDE
     Indication: Prophylaxis against dehydration
     Dosage: 20 MEQ/L KCL AT 250 ML/M2/H FOR 2 H, THEN AT 125 ML/M2/H FOR 24 H.
     Route: 042
  6. SODIUM CHLORIDE [Concomitant]
     Active Substance: SODIUM CHLORIDE
     Indication: Prophylaxis against dehydration
     Route: 042
  7. LEUCOVORIN                         /00566701/ [Concomitant]
     Indication: Product used for unknown indication
     Dosage: 15 MILLIGRAM/SQ. METER, Q6H, DAY 2, 20 H AFTER THE COMPLETION OF METHOTREXATE EVERY 6 H FOR 12 DOSES
     Route: 042
  8. MESNA [Concomitant]
     Active Substance: MESNA
     Indication: Product used for unknown indication
     Dosage: 500 MILLIGRAM/SQ. METER, IMMEDIATELY AFTER AND AT 3 AND 6 H AFTER IFOSFAMIDE
     Route: 042
  9. SODIUM BICARBONATE [Concomitant]
     Active Substance: SODIUM BICARBONATE
     Indication: Prophylaxis against dehydration
     Route: 042
  10. HYDROCORTISONE [Concomitant]
     Active Substance: HYDROCORTISONE
     Indication: Anaplastic large-cell lymphoma
     Dosage: DAY 1
     Route: 065
  11. CYTARABINE [Concomitant]
     Active Substance: CYTARABINE
     Indication: Anaplastic large-cell lymphoma
     Dosage: DAY 1
     Route: 065

REACTIONS (1)
  - Drug ineffective [Unknown]
